FAERS Safety Report 25527242 (Version 1)
Quarter: 2025Q3

REPORT INFORMATION
  Report Type: Spontaneous
  Country: CA (occurrence: CA)
  Receive Date: 20250708
  Receipt Date: 20250708
  Transmission Date: 20251020
  Serious: Yes (Other)
  Sender: INTERCEPT PHARMACEUTICALS
  Company Number: CA-ADVANZ PHARMA-202502000895

PATIENT
  Sex: Female

DRUGS (2)
  1. OCALIVA [Suspect]
     Active Substance: OBETICHOLIC ACID
     Indication: Primary biliary cholangitis
     Route: 048
     Dates: start: 20200303
  2. OCALIVA [Suspect]
     Active Substance: OBETICHOLIC ACID
     Route: 048

REACTIONS (3)
  - Surgery [Unknown]
  - Hepatic enzyme abnormal [Unknown]
  - Product dose omission issue [Unknown]
